FAERS Safety Report 8448597-9 (Version None)
Quarter: 2012Q2

REPORT INFORMATION
  Report Type: 
  Country: None (occurrence: None)
  Receive Date: 20120619
  Receipt Date: 20120606
  Transmission Date: 20120825
  Serious: Yes (Other)
  Sender: FDA-Public Use
  Company Number: US-BAYER-2012-057267

PATIENT
  Age: 32 Year
  Sex: Female

DRUGS (2)
  1. ASPIRIN [Suspect]
     Indication: ILL-DEFINED DISORDER
     Dates: start: 20120201
  2. XARELTO [Interacting]
     Indication: ILL-DEFINED DISORDER
     Route: 048
     Dates: start: 20120201

REACTIONS (1)
  - GASTROINTESTINAL HAEMORRHAGE [None]
